FAERS Safety Report 5720449-4 (Version None)
Quarter: 2008Q2

REPORT INFORMATION
  Report Type: 
  Country: None (occurrence: None)
  Receive Date: 20080428
  Receipt Date: 20080416
  Transmission Date: 20081010
  Serious: Yes (Death)
  Sender: FDA-Public Use
  Company Number: PH-PFIZER INC-2008034891

PATIENT
  Age: 64 Year
  Sex: Female

DRUGS (3)
  1. DILANTIN [Suspect]
     Indication: CONVULSION
  2. ANTI-DIABETICS [Concomitant]
  3. DEXAMETHASONE [Concomitant]

REACTIONS (1)
  - STEVENS-JOHNSON SYNDROME [None]
